FAERS Safety Report 5822917-3 (Version None)
Quarter: 2008Q3

REPORT INFORMATION
  Report Type: 
  Country: None (occurrence: None)
  Receive Date: 20080724
  Receipt Date: 20080724
  Transmission Date: 20090109
  Serious: No
  Sender: FDA-Public Use
  Company Number: None

PATIENT
  Sex: Female
  Weight: 45.3597 kg

DRUGS (2)
  1. BACTRIM DS [Suspect]
     Indication: STAPHYLOCOCCAL INFECTION
     Dosage: 800-16U ONE TWICE A DAY
  2. CIPROFLOXACIN [Suspect]
     Dosage: 500 MG 1 TWICE A DAY

REACTIONS (2)
  - INFECTION [None]
  - MENTAL DISORDER [None]
